FAERS Safety Report 8614474-3 (Version None)
Quarter: 2012Q3

REPORT INFORMATION
  Report Type: 
  Country: None (occurrence: None)
  Receive Date: 20120823
  Receipt Date: 20120815
  Transmission Date: 20120928
  Serious: Yes (Other)
  Sender: FDA-Public Use
  Company Number: PHEH2012US003151

PATIENT
  Sex: Female
  Weight: 181.8 kg

DRUGS (16)
  1. AZACITIDINE [Suspect]
     Dosage: 137 MG
     Route: 042
  2. LASIX [Concomitant]
     Dosage: 40 MG, DAILY
     Route: 048
  3. RED BLOOD CELLS, CONCENTRATED [Concomitant]
  4. WYDASE [Concomitant]
  5. LOMOTIL [Concomitant]
     Dosage: 2.5 MG-0.25 MG,QID PRN
     Route: 048
  6. METOPROLOL TARTRATE [Concomitant]
     Dosage: 50 MG, BID
     Route: 048
  7. TYLENOL [Concomitant]
     Dosage: 500 MG, TAKE 2 AS DIRECTED
     Route: 048
  8. FOLIC ACID [Concomitant]
     Dosage: 1 MG,DAILY
     Route: 048
  9. EXJADE [Suspect]
     Indication: HAEMOCHROMATOSIS
     Dosage: 250 MG, TID
     Route: 048
     Dates: start: 20120601
  10. DIPHENHYDRAMINE HCL [Concomitant]
  11. VIDAZA [Suspect]
     Dates: start: 20110201
  12. DEXAMETHASONE [Concomitant]
     Dosage: 4 MG, 2 TABS 1 HOUR BEFORE EACH VIDAZA TREATMENT
     Route: 048
  13. HYDROCODONE BITARTRATE + ACETAMINOPHEN [Concomitant]
     Indication: PAIN
     Dosage: 5 MG-500 MG, TAKE 2,Q4-6H PRN
  14. ZOLOFT [Concomitant]
     Dosage: 500 MG, DAILY
     Route: 048
  15. ALLOPURINOL [Concomitant]
     Dosage: 100 MG, DAILY
     Route: 048
  16. AMLODIPINE BESYLATE [Concomitant]
     Dosage: 5 MG, DAILY
     Route: 048

REACTIONS (3)
  - LUNG DISORDER [None]
  - HAEMOGLOBIN DECREASED [None]
  - HYPOXIA [None]
